FAERS Safety Report 4586816-X (Version None)
Quarter: 2005Q1

REPORT INFORMATION
  Report Type: 
  Country: None (occurrence: None)
  Receive Date: 20050218
  Receipt Date: 20050118
  Transmission Date: 20050727
  Serious: Yes (Hospitalization)
  Sender: FDA-Public Use
  Company Number: 200510462GDDC

PATIENT
  Age: 59 Year
  Sex: Male

DRUGS (6)
  1. FLUDEX [Suspect]
     Indication: HYPERTENSION
     Route: 048
     Dates: start: 20040427, end: 20041120
  2. ZOMETA [Suspect]
     Route: 042
     Dates: start: 20040722, end: 20041117
  3. KARDEGIC [Concomitant]
     Dates: start: 20040330
  4. THALIDOMIDE [Concomitant]
     Dates: start: 20040722
  5. ZOCOR [Concomitant]
     Dates: start: 20040330
  6. AMLOR [Concomitant]
     Dates: start: 20040330

REACTIONS (6)
  - NEPHRITIS INTERSTITIAL [None]
  - NEPHROANGIOSCLEROSIS [None]
  - RENAL FAILURE ACUTE [None]
  - RENAL INTERSTITIAL FIBROSIS [None]
  - RENAL TUBULAR ATROPHY [None]
  - RENAL TUBULAR DISORDER [None]
